FAERS Safety Report 13101486 (Version 1)
Quarter: 2017Q1

REPORT INFORMATION
  Report Type: Spontaneous
  Country: US (occurrence: US)
  Receive Date: 20170110
  Receipt Date: 20170110
  Transmission Date: 20170428
  Serious: Yes (Other)
  Sender: FDA-Public Use
  Company Number: US-PFIZER INC-2017002768

PATIENT
  Sex: Male

DRUGS (1)
  1. CHANTIX [Suspect]
     Active Substance: VARENICLINE TARTRATE
     Indication: SMOKING CESSATION THERAPY
     Dosage: UNK
     Dates: start: 2008

REACTIONS (17)
  - Depression [Unknown]
  - Asthenia [Unknown]
  - Disturbance in attention [Unknown]
  - Poor quality sleep [Unknown]
  - Decreased interest [Unknown]
  - Fatigue [Unknown]
  - Stress [Unknown]
  - Paranoia [Unknown]
  - Memory impairment [Unknown]
  - Feeling abnormal [Unknown]
  - Impatience [Unknown]
  - Fear [Unknown]
  - Suicidal ideation [Unknown]
  - Feeling guilty [Unknown]
  - Irritability [Unknown]
  - Weight increased [Unknown]
  - Sluggishness [Unknown]

NARRATIVE: CASE EVENT DATE: 2008
